FAERS Safety Report 9816688 (Version 4)
Quarter: 2015Q1

REPORT INFORMATION
  Report Type: Spontaneous
  Country: US (occurrence: US)
  Receive Date: 20140114
  Receipt Date: 20150120
  Transmission Date: 20150721
  Serious: Yes (Hospitalization)
  Sender: FDA-Public Use
  Company Number: US-009507513-1401USA002667

PATIENT
  Sex: Female
  Weight: 49.89 kg

DRUGS (1)
  1. NUVARING [Suspect]
     Active Substance: ETHINYL ESTRADIOL\ETONOGESTREL
     Indication: CONTRACEPTION
     Dosage: 0.12-0.015 MG/24 HR,
     Route: 067
     Dates: start: 200812, end: 200902

REACTIONS (8)
  - Stress [Unknown]
  - Menorrhagia [Unknown]
  - Urinary tract infection [Unknown]
  - Chest pain [Unknown]
  - Transfusion [Unknown]
  - Oophorectomy [Unknown]
  - Deep vein thrombosis [Recovered/Resolved]
  - Iron deficiency anaemia [Unknown]

NARRATIVE: CASE EVENT DATE: 20090130
